FAERS Safety Report 10234531 (Version 1)
Quarter: 2014Q2

REPORT INFORMATION
  Report Type: Spontaneous
  Country: DE (occurrence: DE)
  Receive Date: 20140613
  Receipt Date: 20140613
  Transmission Date: 20141212
  Serious: Yes (Other)
  Sender: FDA-Public Use
  Company Number: DE-ACTELION-A-CH2014-099744

PATIENT
  Age: 5 Year
  Sex: Male

DRUGS (1)
  1. ZAVESCA [Suspect]
     Indication: LIPIDOSIS
     Dosage: UNK
     Route: 048
     Dates: start: 201310

REACTIONS (1)
  - Walking disability [Recovered/Resolved]
